FAERS Safety Report 13394834 (Version 1)
Quarter: 2017Q2

REPORT INFORMATION
  Report Type: Spontaneous
  Country: GB (occurrence: GB)
  Receive Date: 20170403
  Receipt Date: 20170403
  Transmission Date: 20170830
  Serious: Yes (Disabling)
  Sender: FDA-Public Use
  Company Number: GB-ACCORD-049734

PATIENT
  Age: 23 Year
  Sex: Male

DRUGS (3)
  1. DUORESP SPIROMAX [Concomitant]
     Active Substance: BUDESONIDE\FORMOTEROL
     Dosage: ONE OR TWO PUFFS TWICE A DAY. 160MICROGRAMS/DOSE / 4.5MICROGRAMS/DOSE.
     Route: 055
  2. SERTRALINE [Suspect]
     Active Substance: SERTRALINE HYDROCHLORIDE
     Indication: PRODUCT USED FOR UNKNOWN INDICATION
     Dosage: 6 WEEKS AGO
     Route: 048
  3. FEXOFENADINE/FEXOFENADINE HYDROCHLORIDE [Concomitant]
     Route: 048

REACTIONS (1)
  - Psychogenic seizure [Unknown]
